FAERS Safety Report 8910545 (Version 1)
Quarter: 2012Q4

REPORT INFORMATION
  Report Type: 
  Country: US (occurrence: US)
  Receive Date: 20121112
  Receipt Date: 20121112
  Transmission Date: 20130627
  Serious: No
  Sender: FDA-Public Use
  Company Number: US-BAYER-2012-118065

PATIENT
  Age: 81 Year
  Sex: Female

DRUGS (1)
  1. ALEVE CAPLET/TABLET,MIDOL EXTENDED RELIEF CAPLET [Suspect]
     Indication: ARTHRITIS
     Dosage: 3 DF, every 8 hours
     Route: 048
     Dates: start: 201209

REACTIONS (3)
  - Constipation [Not Recovered/Not Resolved]
  - Incorrect drug administration duration [None]
  - Overdose [None]
